FAERS Safety Report 5403223-8 (Version None)
Quarter: 2007Q3

REPORT INFORMATION
  Report Type: 
  Country: None (occurrence: None)
  Receive Date: 20070801
  Receipt Date: 20070726
  Transmission Date: 20080115
  Serious: Yes (Other)
  Sender: FDA-Public Use
  Company Number: US-PFIZER INC-2007062357

PATIENT
  Sex: Female

DRUGS (3)
  1. DETROL LA [Suspect]
  2. VESICARE [Suspect]
  3. ENABLEX [Suspect]

REACTIONS (2)
  - CONVULSION [None]
  - DRUG INEFFECTIVE [None]
